FAERS Safety Report 6919116-0 (Version None)
Quarter: 2010Q3

REPORT INFORMATION
  Report Type: 
  Country: None (occurrence: None)
  Receive Date: 20100811
  Receipt Date: 20100804
  Transmission Date: 20110219
  Serious: Yes (Death, Hospitalization)
  Sender: FDA-Public Use
  Company Number: GB-ROCHE-607267

PATIENT
  Sex: Female
  Weight: 59.3 kg

DRUGS (11)
  1. MYCOPHENOLATE MOFETIL [Suspect]
     Indication: ANTI-NEUTROPHIL CYTOPLASMIC ANTIBODY POSITIVE VASCULITIS
     Route: 065
     Dates: start: 20080512
  2. MYCOPHENOLATE MOFETIL [Suspect]
     Dosage: FREQUENCY: 1GRAM/0.5GRAM/1 GRAM/DAY
     Route: 065
     Dates: start: 20080815, end: 20081104
  3. MYCOPHENOLATE MOFETIL [Suspect]
     Dosage: FREQUENCY: MANE/NOCTE
     Route: 065
  4. PREDNISOLONE [Suspect]
     Indication: ANTI-NEUTROPHIL CYTOPLASMIC ANTIBODY POSITIVE VASCULITIS
     Route: 065
  5. PREDNISOLONE [Suspect]
     Route: 065
  6. PREDNISOLONE [Suspect]
     Route: 065
  7. SERETIDE [Concomitant]
     Dosage: SERETIDE 500, 1 PUFF TWICE DAILY
  8. ALENDRONIC ACID [Concomitant]
     Dosage: FREQUENCY: ON TUESDAYS
  9. CALCICHEW D3 FORTE [Concomitant]
     Dosage: 1/TWICE DAILY
  10. LANSOPRAZOLE [Concomitant]
  11. PARACETAMOL [Concomitant]
     Dosage: 1G/PRN QDS

REACTIONS (5)
  - ABDOMINAL SEPSIS [None]
  - BRONCHIECTASIS [None]
  - GASTROINTESTINAL PERFORATION [None]
  - INTESTINAL PERFORATION [None]
  - PNEUMONIA [None]
